FAERS Safety Report 5370065-1 (Version None)
Quarter: 2007Q2

REPORT INFORMATION
  Report Type: 
  Country: None (occurrence: None)
  Receive Date: 20070626
  Receipt Date: 20070618
  Transmission Date: 20071010
  Serious: Yes (Life-Threatening, Hospitalization)
  Sender: FDA-Public Use
  Company Number: US-SOLVAY-00207032204

PATIENT
  Age: 20199 Day
  Sex: Male
  Weight: 95.5 kg

DRUGS (7)
  1. ANDROGEL [Suspect]
     Indication: HYPOGONADISM
     Dosage: DAILY DOSE: 5 GRAM(S)
     Route: 062
     Dates: start: 20070108, end: 20070207
  2. ANDROGEL [Suspect]
     Dosage: DAILY DOSE: 10 GRAM(S)
     Route: 062
     Dates: start: 20070208, end: 20070306
  3. GLYBURIDE/METF [Concomitant]
     Indication: DIABETES MELLITUS
     Dosage: DAILY DOSE: 4 DOSAGE FORM
     Route: 048
     Dates: start: 20000101
  4. ACTOS [Concomitant]
     Indication: DIABETES MELLITUS
     Dosage: DAILY DOSE: 45 MILLIGRAM(S)
     Route: 048
     Dates: start: 20040101
  5. LIPITOR [Concomitant]
     Indication: HYPERLIPIDAEMIA
     Dosage: DAILY DOSE: 10 MILLIGRAM(S)
     Route: 048
     Dates: start: 20060101
  6. CAPTOPRIL [Concomitant]
     Indication: HYPERTENSION
     Dosage: DAILY DOSE: 75 MILLIGRAM(S)
     Route: 048
  7. GLUCOPHAGE [Concomitant]
     Indication: ILL-DEFINED DISORDER
     Dosage: DAILY DOSE: 2000 MILLIGRAM(S)
     Route: 048

REACTIONS (4)
  - CEREBROVASCULAR ACCIDENT [None]
  - DIAPHRAGMATIC PARALYSIS [None]
  - SINUSITIS [None]
  - SLEEP APNOEA SYNDROME [None]
